APPROVED DRUG PRODUCT: HEAVY SOLUTION NUPERCAINE
Active Ingredient: DIBUCAINE HYDROCHLORIDE
Strength: 2.5MG/ML
Dosage Form/Route: INJECTABLE;INJECTION
Application: N006203 | Product #001
Applicant: NOVARTIS PHARMACEUTICALS CORP
Approved: Approved Prior to Jan 1, 1982 | RLD: No | RS: No | Type: DISCN